FAERS Safety Report 9958504 (Version 1)
Quarter: 2014Q1

REPORT INFORMATION
  Report Type: Spontaneous
  Country: BE (occurrence: BE)
  Receive Date: 20140305
  Receipt Date: 20140305
  Transmission Date: 20141002
  Serious: Yes (Death)
  Sender: FDA-Public Use
  Company Number: BE-BEH-2014040960

PATIENT
  Age: 76 Year
  Sex: Male

DRUGS (1)
  1. HIZENTRA [Suspect]
     Route: 058
     Dates: start: 20130516, end: 20140220

REACTIONS (1)
  - Death [Fatal]
